FAERS Safety Report 7038035-5 (Version None)
Quarter: 2010Q4

REPORT INFORMATION
  Report Type: 
  Country: None (occurrence: None)
  Receive Date: 20101011
  Receipt Date: 20100926
  Transmission Date: 20110411
  Serious: Yes (Hospitalization, Other)
  Sender: FDA-Public Use
  Company Number: PHHY2010BR67400

PATIENT
  Age: 75 Year
  Sex: Male

DRUGS (5)
  1. METFORMIN [Suspect]
     Dosage: 500 MG
  2. VALSARTAN [Suspect]
     Dosage: 160 MG
  3. METOPROLOL TARTRATE [Suspect]
     Dosage: 100 MG
  4. GLIBENCLAMIDE [Suspect]
     Dosage: 2.5 MG
  5. ASPIRIN [Concomitant]

REACTIONS (8)
  - ADENOMA BENIGN [None]
  - ANAEMIA [None]
  - BLOOD POTASSIUM DECREASED [None]
  - HAEMOGLOBIN DECREASED [None]
  - PERIPHERAL ARTERY ANEURYSM [None]
  - PRIMARY HYPERALDOSTERONISM [None]
  - PROTEINURIA [None]
  - RESPIRATORY TRACT INFECTION [None]
